FAERS Safety Report 8833257 (Version 2)
Quarter: 2012Q4

REPORT INFORMATION
  Report Type: 
  Country: JP (occurrence: JP)
  Receive Date: 20121010
  Receipt Date: 20121210
  Transmission Date: 20130627
  Serious: Yes (Other)
  Sender: FDA-Public Use
  Company Number: PHHY2012JP088860

PATIENT
  Age: 82 Year
  Sex: Female

DRUGS (9)
  1. RIVASTIGMIN [Suspect]
     Indication: DEMENTIA ALZHEIMER^S TYPE
     Dosage: 4.5 mg, QD
     Route: 062
     Dates: start: 20120629, end: 20120726
  2. RIVASTIGMIN [Suspect]
     Dosage: 9 mg, QD
     Route: 062
     Dates: start: 20120727, end: 20120823
  3. RIVASTIGMIN [Suspect]
     Dosage: 13.5 mg, QD
     Route: 062
     Dates: start: 20120824, end: 20120920
  4. RIVASTIGMIN [Suspect]
     Dosage: 18 mg, QD
     Route: 062
     Dates: start: 20120921, end: 20120924
  5. RIVASTIGMIN [Suspect]
     Dosage: 13.5 mg, QD
     Route: 062
     Dates: start: 20120925, end: 20121009
  6. FLUITRAN [Concomitant]
  7. BENIDIPINE HYDROCHLORIDE [Concomitant]
  8. ALFAROL [Concomitant]
  9. PRAVASTAN [Concomitant]

REACTIONS (3)
  - Infection [Unknown]
  - Pyrexia [Recovered/Resolved]
  - Decreased appetite [Recovered/Resolved]
